FAERS Safety Report 6763889-7 (Version None)
Quarter: 2010Q2

REPORT INFORMATION
  Report Type: 
  Country: None (occurrence: None)
  Receive Date: 20100610
  Receipt Date: 20100603
  Transmission Date: 20101027
  Serious: Yes (Other)
  Sender: FDA-Public Use
  Company Number: CR-PFIZER INC-2010069936

PATIENT
  Age: 59 Year
  Sex: Female
  Weight: 61.6 kg

DRUGS (8)
  1. IBUPROFEN [Suspect]
     Dosage: UNK
     Route: 048
     Dates: start: 20100516, end: 20100524
  2. NAPROXEN [Suspect]
     Dosage: UNK
     Route: 048
     Dates: start: 20100516, end: 20100524
  3. BLINDED *NO SUBJECT DRUG [Suspect]
     Dosage: UNK
     Route: 048
     Dates: start: 20100516, end: 20100524
  4. BLINDED *PLACEBO [Suspect]
     Dosage: UNK
     Route: 048
     Dates: start: 20100516, end: 20100524
  5. CELECOXIB [Suspect]
     Dosage: UNK
     Route: 048
     Dates: start: 20100516, end: 20100524
  6. IBUPROFEN [Suspect]
     Dosage: UNK
     Route: 048
     Dates: start: 20100516, end: 20100524
  7. NAPROXEN [Suspect]
     Dosage: UNK
     Route: 048
     Dates: start: 20100516, end: 20100524
  8. NEXIUM [Concomitant]
     Dosage: 40 MG, 1X/DAY
     Dates: start: 20100516

REACTIONS (1)
  - ARRHYTHMIA [None]
